FAERS Safety Report 4713036-8 (Version None)
Quarter: 2005Q3

REPORT INFORMATION
  Report Type: 
  Country: None (occurrence: None)
  Receive Date: 20050711
  Receipt Date: 20050628
  Transmission Date: 20060218
  Serious: Yes (Hospitalization)
  Sender: FDA-Public Use
  Company Number: 2005094179

PATIENT
  Age: 75 Year
  Sex: Male

DRUGS (14)
  1. TAHOR (ATORVASTATIN) [Suspect]
     Indication: ILL-DEFINED DISORDER
     Dosage: 20 MG 1 IN 1D
     Dates: start: 19970615, end: 20050507
  2. RAMIPRIL [Concomitant]
  3. AMLODIPINE [Concomitant]
  4. BISOPROLOL FUMARATE [Concomitant]
  5. CLOPIDOGREL BISULFATE [Concomitant]
  6. OMEPRAZOLE [Concomitant]
  7. CLONAZEPAM [Concomitant]
  8. INSULIN [Concomitant]
  9. MORPHINE SULFATE (MORPHINE SULFATE) [Concomitant]
  10. CODEINE PHOSPHATE HEMIHYDRATE (CODEINE PHOSPHATE HEMIHYDRATE) [Concomitant]
  11. OFLOXACIN [Concomitant]
  12. FUROSEMIDE (FUROSEMIDE) [Concomitant]
  13. AMPHOTERICIN B [Concomitant]
  14. ALL OTHER THERAPEUTIC PRODUCTS (ALL OTHER THERAPEUTICS PRODUCTS) [Concomitant]

REACTIONS (6)
  - CONDITION AGGRAVATED [None]
  - DIABETIC NEUROPATHY [None]
  - GENERALISED OEDEMA [None]
  - MUSCLE DISORDER [None]
  - RENAL IMPAIRMENT [None]
  - RHABDOMYOLYSIS [None]
